FAERS Safety Report 13963752 (Version 1)
Quarter: 2017Q3

REPORT INFORMATION
  Report Type: Spontaneous
  Country: US (occurrence: US)
  Receive Date: 20170913
  Receipt Date: 20170913
  Transmission Date: 20171128
  Serious: No
  Sender: FDA-Public Use
  Company Number: US-JNJFOC-20170906803

PATIENT
  Age: 39 Year
  Sex: Female

DRUGS (8)
  1. LYRICA [Concomitant]
     Active Substance: PREGABALIN
     Route: 065
  2. ALPRAZOLAM. [Concomitant]
     Active Substance: ALPRAZOLAM
     Indication: SLEEP DISORDER THERAPY
     Dosage: ONE PILL THE MORNING AND TWO AT NIGHT
     Route: 048
     Dates: start: 2015
  3. METOPROLOL TARTRATE. [Concomitant]
     Active Substance: METOPROLOL TARTRATE
     Indication: HYPERTENSION
     Dosage: STARTED TAKING 5 TO 6 YEARS AGO
     Route: 048
  4. TRAMADOL HYDROCHLORIDE. [Suspect]
     Active Substance: TRAMADOL HYDROCHLORIDE
     Indication: BACK PAIN
     Route: 048
     Dates: start: 2013
  5. GABAPENTIN. [Concomitant]
     Active Substance: GABAPENTIN
     Indication: BACK PAIN
     Route: 065
  6. DIVALPREX [Concomitant]
     Indication: HEADACHE
     Dosage: STARTED TAKING 5 TO 6 YEARS AGO
     Route: 065
  7. DIVALPREX [Concomitant]
     Indication: SEIZURE
     Dosage: STARTED TAKING 5 TO 6 YEARS AGO
     Route: 065
  8. ALPRAZOLAM. [Concomitant]
     Active Substance: ALPRAZOLAM
     Indication: ANXIETY
     Dosage: ONE PILL THE MORNING AND TWO AT NIGHT
     Route: 048
     Dates: start: 2015

REACTIONS (2)
  - Psychomotor hyperactivity [Unknown]
  - Insomnia [Unknown]
